FAERS Safety Report 23325893 (Version 1)
Quarter: 2023Q4

REPORT INFORMATION
  Report Type: Spontaneous
  Country: US (occurrence: US)
  Receive Date: 20231221
  Receipt Date: 20231221
  Transmission Date: 20240110
  Serious: Yes (Hospitalization)
  Sender: FDA-Public Use
  Company Number: US-ELI_LILLY_AND_COMPANY-US202311003288

PATIENT

DRUGS (1)
  1. FORTEO [Suspect]
     Active Substance: TERIPARATIDE
     Indication: Osteoporosis
     Dosage: 250 UG, UNKNOWN
     Route: 058
     Dates: start: 202310

REACTIONS (6)
  - Hip fracture [Unknown]
  - Illness [Unknown]
  - Headache [Unknown]
  - Gastrointestinal disorder [Unknown]
  - Myalgia [Unknown]
  - Nausea [Unknown]
